FAERS Safety Report 8525016-5 (Version None)
Quarter: 2012Q3

REPORT INFORMATION
  Report Type: 
  Country: None (occurrence: None)
  Receive Date: 20120720
  Receipt Date: 20120718
  Transmission Date: 20120928
  Serious: Yes (Hospitalization)
  Sender: FDA-Public Use
  Company Number: US-ROCHE-1033347

PATIENT
  Sex: Female
  Weight: 55 kg

DRUGS (15)
  1. BLINDED TMC435 (NS3/4A PROTEASE INHIBITOR) [Suspect]
     Indication: HEPATITIS C
     Route: 048
     Dates: start: 20110616, end: 20110908
  2. CAFFEINE [Concomitant]
  3. XANAX [Concomitant]
  4. PEGASYS [Suspect]
     Indication: HEPATITIS C
     Route: 058
     Dates: start: 20110616
  5. COPEGUS [Suspect]
     Indication: HEPATITIS C
     Route: 048
     Dates: start: 20110616
  6. BUPROPION HYDROCHLORIDE [Concomitant]
     Indication: DEPRESSION
  7. PENICILLIN VK [Concomitant]
  8. BACID (UNITED STATES) [Concomitant]
     Route: 048
     Dates: start: 20120114
  9. HYDROCODONE BITARTRATE [Concomitant]
     Dosage: 7.5/650 MG
  10. BUTALBITAL [Concomitant]
  11. INTERFERON [Concomitant]
  12. PHENTERMINE [Concomitant]
  13. ALPRAZOLAM [Concomitant]
     Dates: start: 20120114
  14. ASPIRIN [Concomitant]
     Indication: CEREBROVASCULAR ACCIDENT
  15. CLINDAMYCIN [Concomitant]
     Indication: INFECTION
     Route: 048

REACTIONS (3)
  - PANCYTOPENIA [None]
  - HYPOAESTHESIA [None]
  - VIRAL INFECTION [None]
